FAERS Safety Report 9267317 (Version 1)
Quarter: 2013Q2

REPORT INFORMATION
  Report Type: Spontaneous
  Country: FR (occurrence: FR)
  Receive Date: 20130502
  Receipt Date: 20130502
  Transmission Date: 20140414
  Serious: Yes (Other)
  Sender: FDA-Public Use
  Company Number: FR-JNJFOC-20130413009

PATIENT
  Age: 5 Year
  Sex: Female

DRUGS (1)
  1. EPITOMAX [Suspect]
     Indication: PRODUCT USED FOR UNKNOWN INDICATION
     Route: 048

REACTIONS (3)
  - Intentional drug misuse [Unknown]
  - Product packaging quantity issue [Unknown]
  - Muscle spasms [Unknown]
